FAERS Safety Report 6941635-1 (Version None)
Quarter: 2010Q3

REPORT INFORMATION
  Report Type: 
  Country: None (occurrence: None)
  Receive Date: 20100825
  Receipt Date: 20100817
  Transmission Date: 20110219
  Serious: Yes (Hospitalization)
  Sender: FDA-Public Use
  Company Number: JP-AMGEN-KDC422280

PATIENT
  Age: 56 Year
  Sex: Female
  Weight: 47 kg

DRUGS (14)
  1. VECTIBIX [Suspect]
     Indication: COLORECTAL CANCER
     Route: 041
     Dates: start: 20100622
  2. VECTIBIX [Suspect]
     Route: 041
     Dates: start: 20100804
  3. EMEND [Suspect]
     Indication: PROPHYLAXIS OF NAUSEA AND VOMITING
     Route: 048
     Dates: start: 20100622, end: 20100624
  4. EMEND [Suspect]
     Route: 048
     Dates: start: 20100623, end: 20100624
  5. ACTOS TABLETS 30 [Concomitant]
     Indication: DIABETES MELLITUS
     Route: 048
  6. BASEN TABLETS 0.2 [Concomitant]
     Indication: DIABETES MELLITUS
     Route: 048
  7. OXALIPLATIN [Concomitant]
     Indication: COLORECTAL CANCER
     Route: 041
     Dates: start: 20100622
  8. FLUOROURACIL [Concomitant]
     Indication: COLORECTAL CANCER
     Route: 040
     Dates: start: 20100622
  9. FLUOROURACIL [Concomitant]
     Route: 041
     Dates: start: 20100622
  10. CALCIUM LEVOFOLINATE [Concomitant]
     Indication: COLORECTAL CANCER
     Route: 041
     Dates: start: 20100622
  11. KYTRIL [Concomitant]
     Indication: PROPHYLAXIS OF NAUSEA AND VOMITING
     Route: 042
  12. CONIEL [Concomitant]
     Indication: HYPERTENSION
     Route: 048
  13. CORTICOSTEROIDS [Concomitant]
     Indication: PROPHYLAXIS
     Route: 065
  14. LEUCOVORIN CALCIUM [Concomitant]

REACTIONS (1)
  - URINARY RETENTION [None]
